FAERS Safety Report 8401413-3 (Version None)
Quarter: 2012Q2

REPORT INFORMATION
  Report Type: 
  Country: None (occurrence: None)
  Receive Date: 20120601
  Receipt Date: 20120529
  Transmission Date: 20120825
  Serious: Yes (Disabling)
  Sender: FDA-Public Use
  Company Number: PHEH2012US008585

PATIENT
  Sex: Female
  Weight: 58.05 kg

DRUGS (7)
  1. ATORVASTATIN CALCIUM [Concomitant]
     Dosage: 40 MG, QD
     Route: 048
  2. SOGORBIDE [Concomitant]
     Dosage: 30 MG, QD
  3. ASPIRIN [Concomitant]
     Dosage: 81 MG, QD
     Route: 048
  4. RECLAST [Suspect]
     Indication: OSTEOPOROSIS
     Dosage: 5 MG / 100 ML
     Route: 042
     Dates: start: 20120417
  5. METOPROLOL TARTRATE [Concomitant]
     Dosage: 50 MG, QD
     Route: 048
  6. MULTAQ [Concomitant]
     Dosage: 400 MG, UNK
     Route: 048
  7. DABIGATRAN ETEXILATE [Concomitant]
     Dosage: 150 MG, BID
     Route: 048

REACTIONS (1)
  - DEAFNESS [None]
